FAERS Safety Report 6714917-6 (Version None)
Quarter: 2010Q2

REPORT INFORMATION
  Report Type: 
  Country: None (occurrence: None)
  Receive Date: 20100506
  Receipt Date: 20100506
  Transmission Date: 20101027
  Serious: Yes (Death)
  Sender: FDA-Public Use
  Company Number: None

PATIENT
  Age: 11 Year
  Sex: Female
  Weight: 34.4734 kg

DRUGS (1)
  1. TYLENOL-500 [Suspect]

REACTIONS (4)
  - GASTROINTESTINAL VIRAL INFECTION [None]
  - PRODUCT CONTAMINATION MICROBIAL [None]
  - SEPSIS [None]
  - VOMITING [None]
